FAERS Safety Report 5287812-X (Version None)
Quarter: 2007Q2

REPORT INFORMATION
  Report Type: 
  Country: None (occurrence: None)
  Receive Date: 20070402
  Receipt Date: 20070402
  Transmission Date: 20071010
  Serious: Yes (Other)
  Sender: FDA-Public Use
  Company Number: None

PATIENT
  Age: 84 Year
  Sex: Female

DRUGS (9)
  1. VICODIN [Suspect]
     Indication: PAIN
     Dosage: ONE P Q4-6 HOURS PRN PO
     Route: 048
     Dates: start: 20070313, end: 20070314
  2. PROTONIX [Concomitant]
  3. MORPHINE [Concomitant]
  4. LOVENOX [Concomitant]
  5. CLEOCIN HYDROCHLORIDE [Concomitant]
  6. THERA TAB [Concomitant]
  7. FERROUS GLUCONATE [Concomitant]
  8. ZINC SULFATE [Concomitant]
  9. ZOSYN [Concomitant]

REACTIONS (1)
  - NAUSEA [None]
